FAERS Safety Report 14990916 (Version 1)
Quarter: 2018Q2

REPORT INFORMATION
  Report Type: Spontaneous
  Country: US (occurrence: US)
  Receive Date: 20180608
  Receipt Date: 20180608
  Transmission Date: 20180711
  Serious: Yes (Other)
  Sender: FDA-Public Use
  Company Number: US-TEVA-2018-US-901483

PATIENT
  Sex: Female

DRUGS (1)
  1. VENLAFAXINE HYDROCHLORIDE. [Suspect]
     Active Substance: VENLAFAXINE HYDROCHLORIDE
     Indication: DEPRESSION
     Dosage: EXTENDED-RELEASE CAPSULES
     Route: 065

REACTIONS (4)
  - Dermatitis allergic [Unknown]
  - Drug dose omission [Unknown]
  - Product formulation issue [Unknown]
  - Seasonal allergy [Unknown]
